FAERS Safety Report 8531450-X (Version None)
Quarter: 2012Q3

REPORT INFORMATION
  Report Type: 
  Country: None (occurrence: None)
  Receive Date: 20120723
  Receipt Date: 20120709
  Transmission Date: 20120928
  Serious: Yes (Hospitalization)
  Sender: FDA-Public Use
  Company Number: US-PFIZER INC-2012176096

PATIENT
  Age: 75 Year
  Sex: Male

DRUGS (7)
  1. IMA901 [Suspect]
     Indication: RENAL CELL CARCINOMA
     Dosage: UNK
  2. SUNITINIB MALATE [Suspect]
     Indication: RENAL CELL CARCINOMA
     Dosage: UNK
     Dates: start: 20120608, end: 20120705
  3. CYCLOPHOSPHAMIDE [Suspect]
     Indication: RENAL CELL CARCINOMA
     Dosage: UNK
  4. NORVASC [Concomitant]
     Indication: HYPERTENSION
     Dosage: 10 MG, UNK
  5. MEVACOR [Concomitant]
     Indication: HYPERLIPIDAEMIA
     Dosage: 20 MG, UNK
  6. TENORMIN [Concomitant]
     Indication: HYPERTENSION
     Dosage: 50 MG, UNK
  7. GRANULOCYTE MACROPHAGE COLONY STIM FACTOR [Suspect]
     Indication: RENAL CELL CARCINOMA

REACTIONS (1)
  - DEHYDRATION [None]
